FAERS Safety Report 6718476-3 (Version None)
Quarter: 2010Q2

REPORT INFORMATION
  Report Type: 
  Country: None (occurrence: None)
  Receive Date: 20100510
  Receipt Date: 20100503
  Transmission Date: 20101027
  Serious: Yes (Other)
  Sender: FDA-Public Use
  Company Number: DE-B.I. PHARMACEUTICALS,INC./RIDGEFIELD-2010-DE-02504DE

PATIENT
  Sex: Female

DRUGS (1)
  1. AGGRENOX [Suspect]
     Indication: CEREBRAL ISCHAEMIA
     Dosage: 2 ANZ
     Route: 048
     Dates: start: 20090217

REACTIONS (1)
  - CEREBRAL INFARCTION [None]
